FAERS Safety Report 7988130-9 (Version None)
Quarter: 2011Q4

REPORT INFORMATION
  Report Type: 
  Country: None (occurrence: None)
  Receive Date: 20111216
  Receipt Date: 20110621
  Transmission Date: 20120403
  Serious: No
  Sender: FDA-Public Use
  Company Number: US-BRISTOL-MYERS SQUIBB COMPANY-15835283

PATIENT
  Age: 10 Year
  Sex: Male

DRUGS (2)
  1. ABILIFY [Suspect]
     Indication: ATTENTION DEFICIT/HYPERACTIVITY DISORDER
     Dates: start: 20110101
  2. CLONIDINE [Concomitant]

REACTIONS (1)
  - AGGRESSION [None]
